FAERS Safety Report 5704519-2 (Version None)
Quarter: 2008Q2

REPORT INFORMATION
  Report Type: 
  Country: None (occurrence: None)
  Receive Date: 20080411
  Receipt Date: 20080411
  Transmission Date: 20081010
  Serious: Yes (Death)
  Sender: FDA-Public Use
  Company Number: None

PATIENT
  Age: 6 Month
  Sex: Male
  Weight: 6.804 kg

DRUGS (1)
  1. PROTOPIC [Suspect]
     Indication: T-CELL TYPE ACUTE LEUKAEMIA
     Dosage: USED SMALL PEA SIZE AMOUNTS DAILY OR TWICE A   TOP
     Route: 061
     Dates: start: 20020111, end: 20050616

REACTIONS (1)
  - T-CELL TYPE ACUTE LEUKAEMIA [None]
